FAERS Safety Report 9957503 (Version 1)
Quarter: 2014Q1

REPORT INFORMATION
  Report Type: Report from Study
  Country: US (occurrence: US)
  Receive Date: 20140304
  Receipt Date: 20140304
  Transmission Date: 20141002
  Serious: No
  Sender: FDA-Public Use
  Company Number: US-ABBVIE-13P-163-1098939-00

PATIENT
  Age: 46 Year
  Sex: Female

DRUGS (9)
  1. HUMIRA [Suspect]
     Indication: RHEUMATOID ARTHRITIS
     Dates: start: 20120314
  2. PLAQUENIL [Concomitant]
     Indication: PRODUCT USED FOR UNKNOWN INDICATION
  3. MELOXICAM A [Concomitant]
     Indication: PRODUCT USED FOR UNKNOWN INDICATION
  4. FOLIC ACID ALMUS [Concomitant]
     Indication: PRODUCT USED FOR UNKNOWN INDICATION
  5. FERROUS SULFATE 325MG [Concomitant]
     Indication: PRODUCT USED FOR UNKNOWN INDICATION
  6. SULFASALAZINE GF [Concomitant]
     Indication: PRODUCT USED FOR UNKNOWN INDICATION
  7. CENTURY ADVANCED FORMULA [Concomitant]
     Indication: PRODUCT USED FOR UNKNOWN INDICATION
  8. CITRACEL+ D CAPLET [Concomitant]
     Indication: PRODUCT USED FOR UNKNOWN INDICATION
  9. METHOTREXATE R [Concomitant]
     Indication: PRODUCT USED FOR UNKNOWN INDICATION

REACTIONS (1)
  - Adverse drug reaction [Unknown]
